FAERS Safety Report 4312230-8 (Version None)
Quarter: 2004Q1

REPORT INFORMATION
  Report Type: 
  Country: None (occurrence: None)
  Receive Date: 20040305
  Receipt Date: 20031223
  Transmission Date: 20041129
  Serious: Yes (Other)
  Sender: FDA-Public Use
  Company Number: WAES 0312GBR00213

PATIENT
  Age: 67 Year
  Sex: Male

DRUGS (7)
  1. ASPIRIN [Concomitant]
  2. RAMIPRIL [Concomitant]
  3. VIOXX [Suspect]
     Indication: PAIN IN EXTREMITY
     Route: 048
     Dates: start: 20031205, end: 20031211
  4. ROSUVASTATIN CALCIUM [Concomitant]
  5. TRAMADOL HYDROCHLORIDE [Concomitant]
  6. WARFARIN [Suspect]
     Route: 048
  7. ZOPICLONE [Concomitant]

REACTIONS (1)
  - PROTHROMBIN LEVEL DECREASED [None]
